FAERS Safety Report 5750048-X (Version None)
Quarter: 2008Q2

REPORT INFORMATION
  Report Type: 
  Country: None (occurrence: None)
  Receive Date: 20080527
  Receipt Date: 20080519
  Transmission Date: 20081010
  Serious: Yes (Hospitalization)
  Sender: FDA-Public Use
  Company Number: US-GENENTECH-260360

PATIENT
  Age: 60 Year
  Sex: Female
  Weight: 71.4 kg

DRUGS (19)
  1. BEVACIZUMAB [Suspect]
     Indication: NON-SMALL CELL LUNG CANCER
     Dosage: 15 MG/KG, DAY 1
     Route: 042
     Dates: start: 20070920
  2. BEVACIZUMAB [Suspect]
     Dosage: 1146 MG, Q21D
     Route: 042
     Dates: start: 20080306
  3. CETUXIMAB [Suspect]
     Indication: NON-SMALL CELL LUNG CANCER
     Dosage: 400 MG/M2, SINGLE
     Route: 042
     Dates: start: 20070920
  4. CETUXIMAB [Suspect]
     Dosage: 250 MG/M2, 1/WEEK
     Route: 042
     Dates: start: 20070901
  5. CETUXIMAB [Suspect]
     Dosage: 448 MG, 1/WEEK
     Route: 042
     Dates: start: 20080306
  6. PACLITAXEL [Suspect]
     Indication: NON-SMALL CELL LUNG CANCER
     Dosage: 200 MG/M2, DAY 1, Q21D
     Route: 042
     Dates: start: 20070902
  7. CARBOPLATIN [Suspect]
     Indication: NON-SMALL CELL LUNG CANCER
     Dosage: 6 AUC, DAY 1 Q21D (CYCLES -6)
     Route: 042
     Dates: start: 20070920
  8. MARINOL [Concomitant]
     Indication: DRUG USE FOR UNKNOWN INDICATION
  9. REGLAN [Concomitant]
     Indication: DRUG USE FOR UNKNOWN INDICATION
  10. AMBIEN [Concomitant]
     Indication: DRUG USE FOR UNKNOWN INDICATION
  11. MIRALAX [Concomitant]
     Indication: DRUG USE FOR UNKNOWN INDICATION
  12. MAGNESIUM CITRATE [Concomitant]
     Indication: DRUG USE FOR UNKNOWN INDICATION
  13. SENOKOT [Concomitant]
     Indication: DRUG USE FOR UNKNOWN INDICATION
  14. PAXIL [Concomitant]
     Indication: DRUG USE FOR UNKNOWN INDICATION
  15. PRILOSEC [Concomitant]
     Indication: DRUG USE FOR UNKNOWN INDICATION
  16. COMBIVENT [Concomitant]
     Indication: DRUG USE FOR UNKNOWN INDICATION
  17. WELLBUTRIN [Concomitant]
     Indication: DRUG USE FOR UNKNOWN INDICATION
  18. ANZEMET [Concomitant]
     Indication: DRUG USE FOR UNKNOWN INDICATION
  19. RADIATION THERAPY [Concomitant]
     Indication: DRUG USE FOR UNKNOWN INDICATION
     Dosage: 300 CGY,

REACTIONS (2)
  - BACK PAIN [None]
  - OSTEONECROSIS [None]
